FAERS Safety Report 9862317 (Version 1)
Quarter: 2014Q1

REPORT INFORMATION
  Report Type: Spontaneous
  Country: US (occurrence: US)
  Receive Date: 20140203
  Receipt Date: 20140203
  Transmission Date: 20141002
  Serious: Yes (Hospitalization)
  Sender: FDA-Public Use
  Company Number: US-PFIZER INC-2014027348

PATIENT
  Age: 61 Year
  Sex: Male

DRUGS (2)
  1. METHYLPREDNISOLONE ACETATE [Suspect]
     Indication: IDIOPATHIC PULMONARY FIBROSIS
     Dosage: 60 MG EVERY 8 HOURS
  2. PREDNISONE [Suspect]
     Dosage: TAPERING DOSES OVER 5 DAYS

REACTIONS (1)
  - Substance-induced psychotic disorder [Recovering/Resolving]
